FAERS Safety Report 8202189-5 (Version None)
Quarter: 2012Q1

REPORT INFORMATION
  Report Type: 
  Country: None (occurrence: None)
  Receive Date: 20120312
  Receipt Date: 20120305
  Transmission Date: 20120608
  Serious: Yes (Other)
  Sender: FDA-Public Use
  Company Number: US-BAYER-2012-022849

PATIENT
  Age: 49 Year
  Sex: Female

DRUGS (7)
  1. YASMIN [Suspect]
     Indication: ACNE CYSTIC
     Dosage: UNK
  2. ASPIRIN [Concomitant]
     Dosage: UNK
  3. YASMIN [Suspect]
     Indication: DYSFUNCTIONAL UTERINE BLEEDING
  4. DIFFERIN [Concomitant]
     Indication: ACNE
     Dosage: 0.1 %, AT BEDTIME
     Route: 061
  5. YASMIN [Suspect]
     Indication: MENOPAUSAL SYMPTOMS
  6. CALCIUM CARBONATE [Concomitant]
     Dosage: UNK
  7. BENZACLIN [Concomitant]
     Indication: ACNE
     Dosage: 1-5% EVERY MORNING
     Route: 061

REACTIONS (1)
  - PULMONARY EMBOLISM [None]
